FAERS Safety Report 7978491-9 (Version None)
Quarter: 2011Q4

REPORT INFORMATION
  Report Type: 
  Country: None (occurrence: None)
  Receive Date: 20111214
  Receipt Date: 20111207
  Transmission Date: 20120403
  Serious: Yes (Other)
  Sender: FDA-Public Use
  Company Number: JP-PFIZER INC-2011287907

PATIENT
  Age: 18 Year
  Sex: Female
  Weight: 30 kg

DRUGS (7)
  1. TRETINOIN [Suspect]
     Indication: PROPHYLAXIS
     Dosage: 160 MG/M2, 1X/DAY
     Route: 048
     Dates: start: 20010201, end: 20010701
  2. CARBOPLATIN [Suspect]
     Indication: LIVER TRANSPLANT
     Dosage: 110 MG/M2, 1X/DAY
     Route: 042
     Dates: start: 20001109, end: 20001109
  3. LEVOTHYROXINE SODIUM [Suspect]
     Dosage: UNK
  4. PREMARIN [Suspect]
     Indication: AMENORRHOEA
     Dosage: 0.625 MG, 1X/DAY
     Route: 048
     Dates: start: 20040608
  5. GROWJECT [Suspect]
     Indication: BODY HEIGHT BELOW NORMAL
     Dosage: 8 MG, 1X/DAY
     Route: 058
     Dates: start: 20051025
  6. ETOPOSIDE [Suspect]
     Indication: LIVER TRANSPLANT
     Dosage: 200 MG/M2, 1X/DAY
     Route: 042
     Dates: start: 20001109, end: 20001109
  7. MELPHALAN HYDROCHLORIDE [Suspect]
     Indication: LIVER TRANSPLANT
     Dosage: 90 MG/M2, 1X/DAY
     Route: 042
     Dates: start: 20001109, end: 20001109

REACTIONS (2)
  - CONDITION AGGRAVATED [None]
  - FOCAL NODULAR HYPERPLASIA [None]
